FAERS Safety Report 12536938 (Version 1)
Quarter: 2016Q3

REPORT INFORMATION
  Report Type: Spontaneous
  Country: US (occurrence: US)
  Receive Date: 20160707
  Receipt Date: 20160707
  Transmission Date: 20161109
  Serious: No
  Sender: FDA-Public Use
  Company Number: US-GLAXOSMITHKLINE-CHPA2016US000626

PATIENT
  Age: 73 Year
  Sex: Female

DRUGS (1)
  1. TAVIST ALLERGY [Suspect]
     Active Substance: CLEMASTINE FUMARATE
     Indication: VERTIGO
     Dosage: 1 DF, 2D

REACTIONS (1)
  - Product use issue [Unknown]
